FAERS Safety Report 9916312 (Version 1)
Quarter: 2014Q1

REPORT INFORMATION
  Report Type: Spontaneous
  Country: US (occurrence: None)
  Receive Date: 20140220
  Receipt Date: 20140220
  Transmission Date: 20141002
  Serious: Yes (Other)
  Sender: FDA-Public Use
  Company Number: None

PATIENT
  Age: 73 Year
  Sex: Female

DRUGS (1)
  1. ARIMIDEX [Suspect]
     Indication: BREAST CANCER
     Dosage: 1 TAB
     Route: 048
     Dates: start: 20130822

REACTIONS (4)
  - Nausea [None]
  - Dysphagia [None]
  - Confusional state [None]
  - Neuropathy peripheral [None]
